FAERS Safety Report 7874836-9 (Version None)
Quarter: 2011Q4

REPORT INFORMATION
  Report Type: 
  Country: None (occurrence: None)
  Receive Date: 20111031
  Receipt Date: 20111025
  Transmission Date: 20120403
  Serious: Yes (Death, Hospitalization)
  Sender: FDA-Public Use
  Company Number: US-JNJFOC-20100508675

PATIENT
  Sex: Female

DRUGS (4)
  1. TORADOL [Suspect]
     Indication: ILL-DEFINED DISORDER
     Route: 065
  2. ELMIRON [Suspect]
     Indication: BLADDER PAIN
     Route: 048
  3. ELMIRON [Suspect]
     Indication: CYSTITIS INTERSTITIAL
     Route: 048
  4. HEPARIN [Suspect]
     Indication: ANTICOAGULANT THERAPY
     Route: 042
     Dates: start: 20100208, end: 20100201

REACTIONS (5)
  - ADVERSE EVENT [None]
  - HIATUS HERNIA [None]
  - HAEMORRHAGE [None]
  - SHOCK HAEMORRHAGIC [None]
  - ORGAN FAILURE [None]
